FAERS Safety Report 11287923 (Version 1)
Quarter: 2015Q3

REPORT INFORMATION
  Report Type: Spontaneous
  Country: US (occurrence: None)
  Receive Date: 20150720
  Receipt Date: 20150720
  Transmission Date: 20151125
  Serious: Yes (Disabling)
  Sender: FDA-Public Use
  Company Number: None

PATIENT
  Age: 72 Year
  Sex: Female
  Weight: 58.97 kg

DRUGS (5)
  1. TRIAMTRENE/HCTZ 37.5MG/25MG [Suspect]
     Active Substance: HYDROCHLOROTHIAZIDE\TRIAMTERENE
     Indication: FLUID RETENTION
     Dosage: HALF TABLET 2X WEEK
     Route: 048
     Dates: start: 20140813, end: 20150415
  2. LEVOTHYROXINE. [Concomitant]
     Active Substance: LEVOTHYROXINE
  3. ATORVASTATIN [Concomitant]
     Active Substance: ATORVASTATIN
  4. TRIAMTRENE/HCTZ 37.5MG/25MG [Suspect]
     Active Substance: HYDROCHLOROTHIAZIDE\TRIAMTERENE
     Indication: OEDEMA
     Dosage: HALF TABLET 2X WEEK
     Route: 048
     Dates: start: 20140813, end: 20150415
  5. REVLIMID [Concomitant]
     Active Substance: LENALIDOMIDE

REACTIONS (1)
  - Angle closure glaucoma [None]

NARRATIVE: CASE EVENT DATE: 20141217
